FAERS Safety Report 15590847 (Version 2)
Quarter: 2018Q4

REPORT INFORMATION
  Report Type: Spontaneous
  Country: US (occurrence: US)
  Receive Date: 20181106
  Receipt Date: 20181212
  Transmission Date: 20190205
  Serious: No
  Sender: FDA-Public Use
  Company Number: US-ASTRAZENECA-2018SF33063

PATIENT
  Age: 24453 Day
  Sex: Female
  Weight: 117.9 kg

DRUGS (1)
  1. BYDUREON [Suspect]
     Active Substance: EXENATIDE
     Indication: TYPE 2 DIABETES MELLITUS
     Route: 058

REACTIONS (5)
  - Incorrect dose administered [Unknown]
  - Injection site haemorrhage [Unknown]
  - Wrong technique in device usage process [Unknown]
  - Injection site bruising [Unknown]
  - Needle issue [Unknown]

NARRATIVE: CASE EVENT DATE: 20181008
